FAERS Safety Report 11173662 (Version 13)
Quarter: 2017Q4

REPORT INFORMATION
  Report Type: Report from Study
  Country: CA (occurrence: CA)
  Receive Date: 20150609
  Receipt Date: 20171010
  Transmission Date: 20180320
  Serious: Yes (Hospitalization, Other)
  Sender: FDA-Public Use
  Company Number: PHHO2015CA009523

PATIENT
  Age: 76 Year
  Sex: Male
  Weight: 105 kg

DRUGS (9)
  1. TAMSULOISIN [Concomitant]
     Indication: BENIGN PROSTATIC HYPERPLASIA
     Dosage: 0.4 MG, UNK
     Route: 065
     Dates: start: 20121227
  2. ACZ885 [Suspect]
     Active Substance: CANAKINUMAB
     Indication: CARDIOVASCULAR EVENT PROPHYLAXIS
     Dosage: 300 MG, Q3MO
     Route: 058
     Dates: start: 20120703
  3. SPIRIVA [Concomitant]
     Active Substance: TIOTROPIUM BROMIDE MONOHYDRATE
     Indication: CHRONIC OBSTRUCTIVE PULMONARY DISEASE
     Dosage: 18 UG,  1 D
     Route: 055
     Dates: start: 20111013
  4. SALBUTAMOL [Concomitant]
     Active Substance: ALBUTEROL
     Indication: CHRONIC OBSTRUCTIVE PULMONARY DISEASE
     Dosage: 100 MG, PRN
     Route: 055
     Dates: start: 20090622
  5. NEXIUM 1-2-3 [Concomitant]
     Active Substance: AMOXICILLIN\CLARITHROMYCIN\ESOMEPRAZOLE
     Indication: GASTRITIS EROSIVE
     Dosage: 40 MG, 1 CAP; ID
     Route: 048
     Dates: start: 20080403
  6. GLUCOPHAGE [Concomitant]
     Active Substance: METFORMIN HYDROCHLORIDE
     Indication: TYPE 2 DIABETES MELLITUS
     Dosage: 500 MG, ID
     Route: 065
     Dates: start: 20140618
  7. OXEZE [Concomitant]
     Active Substance: FORMOTEROL FUMARATE
     Indication: CHRONIC OBSTRUCTIVE PULMONARY DISEASE
     Dosage: 12 UG, BID
     Route: 055
     Dates: start: 20110422, end: 20150505
  8. TYLENOL [Concomitant]
     Active Substance: ACETAMINOPHEN
     Indication: OSTEOARTHRITIS
     Dosage: 1 G, PRN
     Route: 065
     Dates: start: 20051107
  9. PANTOLOC [Concomitant]
     Active Substance: PANTOPRAZOLE SODIUM
     Indication: GASTRITIS EROSIVE
     Dosage: 40 MG, 1 D
     Route: 065
     Dates: start: 20141229

REACTIONS (3)
  - Squamous cell carcinoma of the oral cavity [Not Recovered/Not Resolved]
  - Squamous cell carcinoma of lung [Recovered/Resolved]
  - Emphysema [Recovering/Resolving]

NARRATIVE: CASE EVENT DATE: 20150311
